FAERS Safety Report 5675955-8 (Version None)
Quarter: 2008Q1

REPORT INFORMATION
  Report Type: 
  Country: None (occurrence: None)
  Receive Date: 20080321
  Receipt Date: 20080314
  Transmission Date: 20080703
  Serious: Yes (Hospitalization)
  Sender: FDA-Public Use
  Company Number: GB-ASTRAZENECA-2008GB00522

PATIENT

DRUGS (3)
  1. ZOLADEX [Suspect]
     Route: 058
     Dates: start: 20071219, end: 20080102
  2. ZOLADEX [Suspect]
     Route: 058
     Dates: start: 20080113
  3. CYPROTERONE ACETATE [Suspect]
     Dates: start: 20071219, end: 20080102

REACTIONS (2)
  - ATRIAL FIBRILLATION [None]
  - PULMONARY EMBOLISM [None]
